FAERS Safety Report 15791984 (Version 3)
Quarter: 2019Q1

REPORT INFORMATION
  Report Type: Not Available
  Country: US (occurrence: US)
  Receive Date: 20190106
  Receipt Date: 20190122
  Transmission Date: 20190417
  Serious: Yes (Other)
  Sender: FDA-Public Use
  Company Number: US-NEUROCRINE BIOSCIENCES INC.-2018NBI03655

PATIENT
  Age: 68 Year
  Sex: Female

DRUGS (1)
  1. INGREZZA [Suspect]
     Active Substance: VALBENAZINE
     Indication: TARDIVE DYSKINESIA
     Route: 048
     Dates: start: 20181215

REACTIONS (7)
  - Fall [Unknown]
  - Foot fracture [Unknown]
  - Ankle fracture [Unknown]
  - Nausea [Unknown]
  - Mental status changes [Unknown]
  - Dizziness [Unknown]
  - Speech disorder [Unknown]

NARRATIVE: CASE EVENT DATE: 20190104
